FAERS Safety Report 10880921 (Version 5)
Quarter: 2016Q1

REPORT INFORMATION
  Report Type: Report from Study
  Country: US (occurrence: US)
  Receive Date: 20150303
  Receipt Date: 20160222
  Transmission Date: 20160525
  Serious: Yes (Other)
  Sender: FDA-Public Use
  Company Number: US-AMGEN-USASP2015017853

PATIENT
  Age: 59 Year
  Sex: Female

DRUGS (2)
  1. ENBREL [Suspect]
     Active Substance: ETANERCEPT
     Dosage: 50 MG, QWK
     Route: 065
     Dates: start: 2015
  2. ENBREL [Suspect]
     Active Substance: ETANERCEPT
     Indication: RHEUMATOID ARTHRITIS
     Dosage: 50 MG, QWK
     Route: 065
     Dates: start: 20100101

REACTIONS (16)
  - Toe amputation [Unknown]
  - Blood uric acid increased [Unknown]
  - Gout [Unknown]
  - Erythema [Not Recovered/Not Resolved]
  - Peripheral swelling [Not Recovered/Not Resolved]
  - Device issue [Unknown]
  - Renal impairment [Unknown]
  - Drug specific antibody present [Unknown]
  - Pain [Unknown]
  - Malaise [Unknown]
  - Foot deformity [Recovered/Resolved]
  - Joint swelling [Not Recovered/Not Resolved]
  - Gouty arthritis [Unknown]
  - Pain in extremity [Not Recovered/Not Resolved]
  - Bone disorder [Unknown]
  - Arthralgia [Unknown]

NARRATIVE: CASE EVENT DATE: 2010
